FAERS Safety Report 8842226 (Version 1)
Quarter: 2012Q4

REPORT INFORMATION
  Report Type: Spontaneous
  Country: US (occurrence: None)
  Receive Date: 20121015
  Receipt Date: 20121015
  Transmission Date: 20130627
  Serious: No
  Sender: FDA-Public Use
  Company Number: None

PATIENT
  Age: 28 Year
  Sex: Female
  Weight: 121.56 kg

DRUGS (1)
  1. MONISTAT [Suspect]
     Indication: YEAST INFECTION

REACTIONS (7)
  - Pain [None]
  - Vulvovaginal burning sensation [None]
  - Vulvovaginal pruritus [None]
  - Hypersensitivity [None]
  - Erythema [None]
  - Vulvovaginal swelling [None]
  - Blood urine present [None]
